FAERS Safety Report 21676477 (Version 3)
Quarter: 2024Q1

REPORT INFORMATION
  Report Type: Spontaneous
  Country: DE (occurrence: DE)
  Receive Date: 20221202
  Receipt Date: 20240305
  Transmission Date: 20240410
  Serious: Yes (Other)
  Sender: FDA-Public Use
  Company Number: DE-BIOGEN-2022BI01172363

PATIENT
  Age: 37 Year
  Sex: Male

DRUGS (3)
  1. SPINRAZA [Suspect]
     Active Substance: NUSINERSEN
     Indication: Spinal muscular atrophy
     Route: 050
     Dates: start: 201804, end: 202208
  2. SPINRAZA [Suspect]
     Active Substance: NUSINERSEN
     Route: 050
     Dates: start: 201804, end: 20221114
  3. RISDIPLAM [Concomitant]
     Active Substance: RISDIPLAM
     Indication: Product used for unknown indication
     Dosage: 5 MG DAILY SINCE DEC 2022
     Route: 050
     Dates: start: 202212

REACTIONS (2)
  - CSF pressure increased [Recovered/Resolved with Sequelae]
  - Intracranial pressure increased [Unknown]

NARRATIVE: CASE EVENT DATE: 20220824
